FAERS Safety Report 13229888 (Version 1)
Quarter: 2017Q1

REPORT INFORMATION
  Report Type: Spontaneous
  Country: US (occurrence: US)
  Receive Date: 20170214
  Receipt Date: 20170214
  Transmission Date: 20170428
  Serious: No
  Sender: FDA-Public Use
  Company Number: US-PFIZER INC-2017057328

PATIENT
  Age: 63 Year
  Sex: Female

DRUGS (1)
  1. XELJANZ XR [Suspect]
     Active Substance: TOFACITINIB CITRATE
     Dosage: UNK

REACTIONS (8)
  - Fatigue [Unknown]
  - Sedation [Unknown]
  - Nausea [Unknown]
  - Depression [Unknown]
  - Disturbance in attention [Unknown]
  - Movement disorder [Unknown]
  - Somnolence [Unknown]
  - Drug ineffective [Unknown]
